FAERS Safety Report 8231221-8 (Version None)
Quarter: 2012Q1

REPORT INFORMATION
  Report Type: 
  Country: None (occurrence: None)
  Receive Date: 20120321
  Receipt Date: 20120308
  Transmission Date: 20120608
  Serious: Yes (Death)
  Sender: FDA-Public Use
  Company Number: UTC-016420

PATIENT
  Age: 61 Year
  Sex: Female
  Weight: 82.7 kg

DRUGS (2)
  1. REMODULIN [Suspect]
     Indication: PULMONARY HYPERTENSION
     Dosage: 232.56 UG/KG (0.1615 UG/KG, 1 IN 1 MIN), SUBCUTANEOUS
     Route: 058
     Dates: start: 20060609
  2. ADCIRCA [Concomitant]

REACTIONS (1)
  - DEATH [None]
